FAERS Safety Report 22365591 (Version 2)
Quarter: 2023Q2

REPORT INFORMATION
  Report Type: Spontaneous
  Country: US (occurrence: US)
  Receive Date: 20230525
  Receipt Date: 20230606
  Transmission Date: 20230722
  Serious: No
  Sender: FDA-Public Use
  Company Number: US-SA-SAC20230525000046

PATIENT
  Age: 60 Year
  Sex: Male

DRUGS (1)
  1. KEVZARA [Suspect]
     Active Substance: SARILUMAB
     Indication: Rheumatoid arthritis
     Dosage: 200 MG, FREQUENCY OTHER
     Route: 058
     Dates: start: 202302, end: 202305

REACTIONS (4)
  - Gastric disorder [Unknown]
  - Dizziness [Unknown]
  - Abdominal distension [Unknown]
  - Eosinophil count increased [Not Recovered/Not Resolved]

NARRATIVE: CASE EVENT DATE: 20230512
